FAERS Safety Report 9382643 (Version 3)
Quarter: 2014Q2

REPORT INFORMATION
  Report Type: Spontaneous
  Country: US (occurrence: US)
  Receive Date: 20130703
  Receipt Date: 20140606
  Transmission Date: 20141212
  Serious: Yes (Death, Hospitalization)
  Sender: FDA-Public Use
  Company Number: US-GLAXOSMITHKLINE-A1029876A

PATIENT
  Age: 66 Year
  Sex: Male

DRUGS (2)
  1. AVANDIA [Suspect]
     Indication: DIABETES MELLITUS
     Dosage: 4MG PER DAY
     Route: 048
     Dates: end: 200210
  2. ROSIGLITAZONE MALEATE [Suspect]
     Dosage: 8MG PER DAY
     Route: 048
     Dates: start: 20020919, end: 20040219

REACTIONS (12)
  - Cardio-respiratory arrest [Fatal]
  - Myocardial infarction [Unknown]
  - Cardiac failure congestive [Unknown]
  - Myocardial ischaemia [Unknown]
  - Cardiogenic shock [Unknown]
  - Ischaemic cardiomyopathy [Unknown]
  - Atrial fibrillation [Unknown]
  - Endocarditis [Unknown]
  - Respiratory failure [Unknown]
  - Pulmonary oedema [Unknown]
  - Coronary artery disease [Unknown]
  - Pleural effusion [Unknown]
